FAERS Safety Report 4932492-3 (Version None)
Quarter: 2006Q1

REPORT INFORMATION
  Report Type: 
  Country: None (occurrence: None)
  Receive Date: 20060303
  Receipt Date: 20050901
  Transmission Date: 20060701
  Serious: Yes (Hospitalization, Disabling)
  Sender: FDA-Public Use
  Company Number: US-MERCK-0509USA00512

PATIENT
  Age: 47 Year
  Sex: Female
  Weight: 54 kg

DRUGS (5)
  1. VIOXX [Suspect]
     Route: 048
     Dates: start: 20001011, end: 20030722
  2. VIOXX [Suspect]
     Route: 048
     Dates: start: 20030723, end: 20031112
  3. VIOXX [Suspect]
     Route: 048
     Dates: start: 20031113, end: 20040921
  4. CLIMARA [Concomitant]
     Indication: HORMONE REPLACEMENT THERAPY
     Route: 065
     Dates: start: 20010101
  5. ZOLOFT [Concomitant]
     Route: 065
     Dates: start: 20010101

REACTIONS (5)
  - CONVULSION [None]
  - DEPRESSION [None]
  - GALLBLADDER DISORDER [None]
  - INTRACRANIAL ANEURYSM [None]
  - SUBARACHNOID HAEMORRHAGE [None]
